FAERS Safety Report 20379158 (Version 2)
Quarter: 2023Q4

REPORT INFORMATION
  Report Type: Spontaneous
  Country: DE (occurrence: DE)
  Receive Date: 20220126
  Receipt Date: 20231016
  Transmission Date: 20240110
  Serious: Yes (Other)
  Sender: FDA-Public Use
  Company Number: DE-TAKEDA-2022TUS003557

PATIENT

DRUGS (5)
  1. ENTYVIO [Suspect]
     Active Substance: VEDOLIZUMAB
     Indication: Colitis ulcerative
     Dosage: UNK
     Route: 065
     Dates: start: 202112
  2. ENTYVIO [Suspect]
     Active Substance: VEDOLIZUMAB
     Indication: Colitis ulcerative
     Dosage: UNK
     Route: 058
     Dates: end: 202303
  3. CORTISONE [Concomitant]
     Active Substance: CORTISONE
     Indication: Renal disorder
     Dosage: UNK
     Dates: start: 202305, end: 202309
  4. BUDESONIDE [Concomitant]
     Active Substance: BUDESONIDE
     Indication: Gastrointestinal inflammation
     Dosage: 9 MILLIGRAM
     Dates: start: 202309
  5. FRESUBIN [Concomitant]
     Active Substance: AMINO ACIDS\DEXTROSE\ELECTROLYTES NOS\SOYBEAN OIL\VITAMINS
     Dosage: UNK

REACTIONS (8)
  - Pyelitis [Unknown]
  - Glomerulonephritis minimal lesion [Unknown]
  - Nephrotic syndrome [Unknown]
  - Gardnerella infection [Unknown]
  - Gastrointestinal inflammation [Unknown]
  - Hormone level abnormal [Unknown]
  - Nasopharyngitis [Unknown]
  - Fatigue [Unknown]

NARRATIVE: CASE EVENT DATE: 20221201
